FAERS Safety Report 10542368 (Version 1)
Quarter: 2014Q4

REPORT INFORMATION
  Report Type: Spontaneous
  Country: US (occurrence: US)
  Receive Date: 20141025
  Receipt Date: 20141025
  Transmission Date: 20150529
  Serious: No
  Sender: FDA-Public Use
  Company Number: US-009507513-1410USA005572

PATIENT
  Sex: Female

DRUGS (3)
  1. ASMANEX [Suspect]
     Active Substance: MOMETASONE FUROATE
     Indication: DYSPNOEA
     Dosage: 1-2 PUFFS, QD
     Route: 055
     Dates: start: 2014
  2. DIOVAN [Concomitant]
     Active Substance: VALSARTAN
  3. ASMANEX [Suspect]
     Active Substance: MOMETASONE FUROATE
     Indication: FOOD ALLERGY

REACTIONS (4)
  - Seborrhoea [Recovered/Resolved]
  - Product quality issue [Unknown]
  - Overdose [Unknown]
  - Incorrect dose administered [Unknown]

NARRATIVE: CASE EVENT DATE: 2014
